FAERS Safety Report 21387143 (Version 2)
Quarter: 2022Q4

REPORT INFORMATION
  Report Type: Report from Study
  Country: US (occurrence: US)
  Receive Date: 20220928
  Receipt Date: 20221018
  Transmission Date: 20230113
  Serious: Yes (Hospitalization)
  Sender: FDA-Public Use
  Company Number: US-ABBVIE-4130458

PATIENT
  Sex: Female

DRUGS (2)
  1. HUMIRA [Suspect]
     Active Substance: ADALIMUMAB
     Indication: Crohn^s disease
     Dosage: CITRATE FREE?FORM STRENGTH 40 MG
     Route: 058
  2. Covid-19 vaccine [Concomitant]
     Indication: COVID-19 immunisation
     Dosage: FREQUENCY 1 IN ONCE?COVID VACCINE
     Route: 030

REACTIONS (6)
  - Hospitalisation [Recovering/Resolving]
  - Dehydration [Recovering/Resolving]
  - Gastrointestinal infection [Recovering/Resolving]
  - Crohn^s disease [Not Recovered/Not Resolved]
  - Adverse food reaction [Unknown]
  - Abdominal discomfort [Unknown]
